FAERS Safety Report 13527579 (Version 1)
Quarter: 2017Q2

REPORT INFORMATION
  Report Type: Spontaneous
  Country: US (occurrence: US)
  Receive Date: 20170509
  Receipt Date: 20170509
  Transmission Date: 20170830
  Serious: Yes (Hospitalization, Disabling, Other)
  Sender: FDA-Public Use
  Company Number: US-PFIZER INC-2017199296

PATIENT
  Age: 31 Year
  Sex: Male

DRUGS (3)
  1. PHENYTOIN SODIUM. [Suspect]
     Active Substance: PHENYTOIN SODIUM
     Dosage: 100 MG, 3X/DAY
     Route: 048
     Dates: end: 2011
  2. PHENYTOIN SODIUM. [Suspect]
     Active Substance: PHENYTOIN SODIUM
     Indication: SEIZURE
     Dosage: 100 MG, 3X/DAY
     Route: 048
     Dates: start: 199805
  3. PHENYTOIN SODIUM. [Suspect]
     Active Substance: PHENYTOIN SODIUM
     Dosage: 330 MG, DAILY (100 MG ONCE CAPSULE THREE TIMES A DAY AND THE EXTRA 30 MG)
     Route: 048

REACTIONS (6)
  - Seizure [Recovering/Resolving]
  - Drug ineffective [Unknown]
  - Generalised tonic-clonic seizure [Unknown]
  - Cerebrovascular accident [Recovered/Resolved with Sequelae]
  - Mental impairment [Recovering/Resolving]
  - Aphasia [Not Recovered/Not Resolved]

NARRATIVE: CASE EVENT DATE: 1998
